FAERS Safety Report 8646031 (Version 7)
Quarter: 2013Q3

REPORT INFORMATION
  Report Type: Spontaneous
  Country: US (occurrence: US)
  Receive Date: 20120702
  Receipt Date: 20130904
  Transmission Date: 20140515
  Serious: Yes (Hospitalization, Disabling, Other)
  Sender: FDA-Public Use
  Company Number: US-009507513-1206USA04703

PATIENT
  Sex: Female
  Weight: 77.98 kg

DRUGS (5)
  1. FOSAMAX [Suspect]
     Indication: OSTEOPOROSIS
     Dosage: 10 MG, UNK
     Route: 048
     Dates: start: 20040802
  2. FOSAMAX [Suspect]
     Indication: OSTEOPENIA
     Dosage: 70 MG, UNK
     Route: 048
     Dates: start: 20040802, end: 201104
  3. FOSAMAX [Suspect]
     Dosage: 10-70 MG
     Route: 048
     Dates: start: 20040802, end: 20050810
  4. LEVOXYL [Concomitant]
     Indication: HYPOTHYROIDISM
     Dosage: UNK
     Dates: start: 1980
  5. BUPROPION HYDROCHLORIDE [Concomitant]
     Indication: DEPRESSION
     Dosage: UNK
     Dates: start: 1998

REACTIONS (42)
  - Femur fracture [Not Recovered/Not Resolved]
  - Open reduction of fracture [Unknown]
  - Low turnover osteopathy [Not Recovered/Not Resolved]
  - Osteoporosis [Not Recovered/Not Resolved]
  - Stress fracture [Not Recovered/Not Resolved]
  - Femur fracture [Not Recovered/Not Resolved]
  - Arthropathy [Unknown]
  - Fall [Unknown]
  - Knee arthroplasty [Unknown]
  - Open reduction of fracture [Unknown]
  - Patella fracture [Unknown]
  - Vitamin D deficiency [Unknown]
  - Osteoarthritis [Not Recovered/Not Resolved]
  - Urinary tract infection [Not Recovered/Not Resolved]
  - Colonoscopy abnormal [Unknown]
  - Glaucoma [Unknown]
  - Cardiac murmur [Unknown]
  - Migraine [Unknown]
  - Drug intolerance [Unknown]
  - Polypectomy [Unknown]
  - Anaemia [Unknown]
  - Mammogram abnormal [Unknown]
  - Breast mass [Unknown]
  - Device failure [Unknown]
  - Tooth extraction [Unknown]
  - Dental caries [Unknown]
  - Apicectomy [Unknown]
  - Impaired healing [Unknown]
  - Cataract operation [Unknown]
  - Retinal operation [Unknown]
  - Osteoarthritis [Unknown]
  - Retinal detachment [Unknown]
  - Endodontic procedure [Unknown]
  - Tooth extraction [Unknown]
  - Arthritis [Unknown]
  - Tooth extraction [Unknown]
  - Insomnia [Unknown]
  - Back pain [Unknown]
  - Neck pain [Unknown]
  - Dizziness [Unknown]
  - Drug hypersensitivity [Unknown]
  - Vomiting [Unknown]
